FAERS Safety Report 7268826-7 (Version None)
Quarter: 2011Q1

REPORT INFORMATION
  Report Type: 
  Country: None (occurrence: None)
  Receive Date: 20110201
  Receipt Date: 20110131
  Transmission Date: 20110831
  Serious: Yes (Other)
  Sender: FDA-Public Use
  Company Number: CH-PFIZER INC-2011022594

PATIENT
  Sex: Male

DRUGS (3)
  1. TRANXILIUM [Concomitant]
  2. CHAMPIX [Suspect]
     Indication: SMOKING CESSATION THERAPY
     Dosage: UNK
  3. METHADONE [Concomitant]

REACTIONS (1)
  - PSYCHIATRIC DECOMPENSATION [None]
